FAERS Safety Report 10465962 (Version 1)
Quarter: 2014Q3

REPORT INFORMATION
  Report Type: Spontaneous
  Country: US (occurrence: US)
  Receive Date: 20140922
  Receipt Date: 20140922
  Transmission Date: 20150326
  Serious: Yes (Hospitalization)
  Sender: FDA-Public Use
  Company Number: US-TEVA-484856USA

PATIENT
  Age: 66 Year
  Sex: Female

DRUGS (1)
  1. PACLITAXEL. [Suspect]
     Active Substance: PACLITAXEL
     Indication: BREAST CANCER
     Dosage: 1X EVERY 2 WEEKS X 8 WEEKS
     Dates: start: 201403

REACTIONS (4)
  - Thrombosis [Unknown]
  - Neuropathy peripheral [Unknown]
  - Sensory loss [Unknown]
  - Drug administration error [Unknown]

NARRATIVE: CASE EVENT DATE: 20140525
